FAERS Safety Report 6600280-8 (Version None)
Quarter: 2010Q1

REPORT INFORMATION
  Report Type: 
  Country: None (occurrence: None)
  Receive Date: 20100224
  Receipt Date: 20100216
  Transmission Date: 20100710
  Serious: Yes (Other)
  Sender: FDA-Public Use
  Company Number: US-PFIZER INC-2010020605

PATIENT
  Sex: Male
  Weight: 95.238 kg

DRUGS (2)
  1. VIAGRA [Suspect]
     Indication: ERECTILE DYSFUNCTION
     Dosage: UNK
     Route: 048
  2. SIMVASTATIN [Concomitant]
     Indication: STENT PLACEMENT
     Dosage: 40 MG, 1X/DAY
     Route: 048

REACTIONS (5)
  - CARDIAC DISORDER [None]
  - DRUG INEFFECTIVE [None]
  - FLUSHING [None]
  - INCORRECT DOSE ADMINISTERED [None]
  - NASAL CONGESTION [None]
